FAERS Safety Report 4395778-X (Version None)
Quarter: 2004Q3

REPORT INFORMATION
  Report Type: 
  Country: None (occurrence: None)
  Receive Date: 20040709
  Receipt Date: 20040624
  Transmission Date: 20050211
  Serious: Yes (Hospitalization)
  Sender: FDA-Public Use
  Company Number: 200413176BCC

PATIENT
  Age: 74 Year
  Sex: Male

DRUGS (6)
  1. BAYER CHILDRENS ASPIRIN (ACETYLSALICYLIC ACID) [Suspect]
     Indication: CARDIOVASCULAR DISORDER
     Dosage: 81 MG, QD, ORAL
     Route: 048
     Dates: start: 20010101
  2. BAYER CHILDRENS ASPIRIN (ACETYLSALICYLIC ACID) [Suspect]
     Indication: PROPHYLAXIS
     Dosage: 81 MG, QD, ORAL
     Route: 048
     Dates: start: 20010101
  3. NICOTINE POLACRILEX [Suspect]
     Indication: SMOKING CESSATION THERAPY
     Dosage: 4 MG, TOTAL DAILY
     Dates: start: 20040401
  4. LOPRESSOR [Suspect]
     Indication: HYPERTENSION
     Dosage: ORAL
     Route: 048
     Dates: start: 19790101
  5. DIGOXIN [Concomitant]
  6. RYTHMOL [Concomitant]

REACTIONS (1)
  - PNEUMONIA [None]
